FAERS Safety Report 8016939-4 (Version None)
Quarter: 2012Q1

REPORT INFORMATION
  Report Type: 
  Country: None (occurrence: None)
  Receive Date: 20120102
  Receipt Date: 20111223
  Transmission Date: 20120608
  Serious: Yes (Hospitalization, Other)
  Sender: FDA-Public Use
  Company Number: PHBS2005BR12267

PATIENT
  Age: 8 Year
  Sex: Male

DRUGS (5)
  1. RITALIN [Suspect]
     Indication: ATTENTION DEFICIT/HYPERACTIVITY DISORDER
     Dosage: 10 MG, BID
     Route: 048
     Dates: start: 20050222
  2. CLONIDINE HYDROCHLORIDE [Interacting]
     Indication: HYPERTENSION
  3. RITALIN [Interacting]
     Dosage: 10 MG, TID
     Route: 048
  4. TOFRANIL [Concomitant]
  5. NEULEPTIL [Concomitant]
     Dosage: 4 MG, UNK

REACTIONS (9)
  - CENTRAL NERVOUS SYSTEM LESION [None]
  - ATTENTION DEFICIT/HYPERACTIVITY DISORDER [None]
  - DRUG INTERACTION [None]
  - POST-TRAUMATIC STRESS DISORDER [None]
  - MENTAL DISORDER [None]
  - MALAISE [None]
  - AGITATION [None]
  - AGGRESSION [None]
  - DEPRESSION [None]
